FAERS Safety Report 19239781 (Version 3)
Quarter: 2024Q4

REPORT INFORMATION
  Report Type: Spontaneous
  Country: US (occurrence: US)
  Receive Date: 20210511
  Receipt Date: 20241029
  Transmission Date: 20250115
  Serious: Yes (Hospitalization, Other)
  Sender: ACCORD
  Company Number: US-ACCORD-220483

PATIENT
  Age: 53 Year
  Sex: Female

DRUGS (9)
  1. CARBOPLATIN [Suspect]
     Active Substance: CARBOPLATIN
     Indication: Breast cancer
  2. DOCETAXEL [Suspect]
     Active Substance: DOCETAXEL
     Indication: Breast cancer
     Dosage: NUMBER OF CYCLES: 5; EVERY 3 WEEKS
     Dates: start: 20180420, end: 20180420
  3. PARAPLATIN [Suspect]
     Active Substance: CARBOPLATIN
     Indication: Neuropathy peripheral
     Route: 042
  4. HERCEPTIN [Suspect]
     Active Substance: TRASTUZUMAB
     Indication: Breast cancer
     Dosage: INJECT INTO THE VEIN.
     Route: 042
  5. PERJETA [Suspect]
     Active Substance: PERTUZUMAB
     Indication: Product used for unknown indication
     Route: 042
  6. DOCETAXEL [Suspect]
     Active Substance: DOCETAXEL
     Indication: Chemotherapy
     Dosage: NUMBER OF CYCLES: 5; EVERY 3 WEEKS
     Dates: start: 20180511, end: 20180511
  7. DOCETAXEL [Suspect]
     Active Substance: DOCETAXEL
     Indication: Chemotherapy
     Dosage: NUMBER OF CYCLES: 5; EVERY 3 WEEKS
     Dates: start: 20180601, end: 20180601
  8. DOCETAXEL [Suspect]
     Active Substance: DOCETAXEL
     Indication: Chemotherapy
     Dosage: NUMBER OF CYCLES: 5; EVERY 3 WEEKS
     Dates: start: 20180622, end: 20180622
  9. DOCETAXEL [Suspect]
     Active Substance: DOCETAXEL
     Indication: Chemotherapy
     Dosage: NUMBER OF CYCLES: 5; EVERY 3 WEEKS
     Dates: start: 20180713, end: 20180713

REACTIONS (4)
  - Dacryostenosis acquired [Not Recovered/Not Resolved]
  - Neuropathy peripheral [Unknown]
  - Dry eye [Recovered/Resolved]
  - Off label use [Unknown]

NARRATIVE: CASE EVENT DATE: 20180828
